FAERS Safety Report 11178045 (Version 2)
Quarter: 2015Q3

REPORT INFORMATION
  Report Type: Report from Study
  Country: GB (occurrence: GB)
  Receive Date: 20150610
  Receipt Date: 20150701
  Transmission Date: 20151125
  Serious: Yes (Hospitalization)
  Sender: FDA-Public Use
  Company Number: GB-GLAXOSMITHKLINE-GB2015GSK076267

PATIENT
  Age: 73 Year
  Sex: Female

DRUGS (33)
  1. METOCLOPRAMIDE. [Concomitant]
     Active Substance: METOCLOPRAMIDE
  2. SANDO-K [Concomitant]
     Active Substance: POTASSIUM BICARBONATE\POTASSIUM CHLORIDE
  3. LACTULOSE. [Concomitant]
     Active Substance: LACTULOSE
  4. PACLITAXEL. [Suspect]
     Active Substance: PACLITAXEL
     Indication: HER-2 POSITIVE BREAST CANCER
     Dosage: 120 MG, WE
     Dates: start: 20121221, end: 20130412
  5. CAPECITABINE. [Suspect]
     Active Substance: CAPECITABINE
     Dosage: 1000 MG, QD
     Dates: start: 20130827
  6. DIFFLAM [Concomitant]
     Active Substance: BENZYDAMINE HYDROCHLORIDE
  7. METRONIDAZOLE. [Concomitant]
     Active Substance: METRONIDAZOLE
  8. DEXAMETHASONE. [Concomitant]
     Active Substance: DEXAMETHASONE
  9. BENDROFLUAZIDE [Concomitant]
     Active Substance: BENDROFLUMETHIAZIDE
  10. TRIMETHOPRIM. [Concomitant]
     Active Substance: TRIMETHOPRIM
  11. GANFORT [Concomitant]
     Active Substance: BIMATOPROST\TIMOLOL
  12. TYKERB [Suspect]
     Active Substance: LAPATINIB DITOSYLATE
     Dosage: 1000 MG, QD
     Dates: start: 20130827
  13. TRASTUZUMAB [Suspect]
     Active Substance: TRASTUZUMAB
     Indication: HER-2 POSITIVE BREAST CANCER
     Dosage: 8 MG/KG, CYC
     Route: 042
     Dates: start: 20121206, end: 20121227
  14. PARACETAMOL [Concomitant]
     Active Substance: ACETAMINOPHEN
  15. SIMVASTATIN. [Concomitant]
     Active Substance: SIMVASTATIN
  16. SENNA [Concomitant]
     Active Substance: SENNA LEAF\SENNOSIDES\SENNOSIDES A AND B
  17. AMOXICILLIN. [Concomitant]
     Active Substance: AMOXICILLIN
  18. FLUXETIN [Concomitant]
  19. PERTUZUMAB [Suspect]
     Active Substance: PERTUZUMAB
     Indication: HER-2 POSITIVE BREAST CANCER
     Dosage: 840 MG, CYC
     Route: 042
     Dates: start: 20121206, end: 20121206
  20. PERTUZUMAB [Suspect]
     Active Substance: PERTUZUMAB
     Dosage: 840 MG, CYC
     Route: 042
     Dates: start: 20121227, end: 20130816
  21. FLUOXETINE [Concomitant]
     Active Substance: FLUOXETINE\FLUOXETINE HYDROCHLORIDE
  22. CLARITHROMYCIN. [Concomitant]
     Active Substance: CLARITHROMYCIN
  23. FRUSEMIDE [Concomitant]
     Active Substance: FUROSEMIDE
  24. LANSOPRAZOLE. [Concomitant]
     Active Substance: LANSOPRAZOLE
  25. TYKERB [Suspect]
     Active Substance: LAPATINIB DITOSYLATE
     Dosage: 750 MG, QD
     Dates: start: 20130924
  26. ZOMORPH [Concomitant]
     Active Substance: MORPHINE SULFATE
  27. LOPERAMIDE [Concomitant]
     Active Substance: LOPERAMIDE
  28. TRASTUZUMAB [Suspect]
     Active Substance: TRASTUZUMAB
     Dosage: 288 MG, CYC
     Dates: end: 20130816
  29. AZOPT [Concomitant]
     Active Substance: BRINZOLAMIDE
  30. TRAMADOL. [Concomitant]
     Active Substance: TRAMADOL
  31. PERINDOPRIL [Concomitant]
     Active Substance: PERINDOPRIL
  32. AUGMENTIN [Concomitant]
     Active Substance: AMOXICILLIN\CLAVULANATE POTASSIUM
  33. REFRESH OPTIVE [Concomitant]
     Active Substance: CARBOXYMETHYLCELLULOSE SODIUM\GLYCERIN

REACTIONS (1)
  - Diarrhoea [Recovered/Resolved]

NARRATIVE: CASE EVENT DATE: 20130909
